FAERS Safety Report 5892878-X (Version None)
Quarter: 2008Q3

REPORT INFORMATION
  Report Type: 
  Country: None (occurrence: None)
  Receive Date: 20080922
  Receipt Date: 20080922
  Transmission Date: 20090109
  Serious: Yes (Disabling)
  Sender: FDA-Public Use
  Company Number: None

PATIENT
  Age: 63 Year
  Sex: Female
  Weight: 67.1324 kg

DRUGS (1)
  1. LEVAQUIN [Suspect]
     Indication: INFECTED BITES
     Dosage: 1 DAILY
     Dates: start: 20080623, end: 20080703

REACTIONS (1)
  - ROTATOR CUFF SYNDROME [None]
